FAERS Safety Report 6751361-X (Version None)
Quarter: 2010Q2

REPORT INFORMATION
  Report Type: 
  Country: None (occurrence: None)
  Receive Date: 20100602
  Receipt Date: 20100526
  Transmission Date: 20101027
  Serious: Yes (Hospitalization)
  Sender: FDA-Public Use
  Company Number: DE-SANOFI-AVENTIS-2010SA029924

PATIENT
  Age: 77 Year
  Sex: Male

DRUGS (5)
  1. TAXOTERE [Suspect]
     Indication: PROSTATE CANCER
     Route: 041
     Dates: start: 20100510, end: 20100510
  2. FENTANYL [Concomitant]
     Indication: PAIN
     Dosage: UNIT: MCG/H DOSE:75 NOT APPLICABLE
     Route: 062
  3. CITALOPRAM [Concomitant]
     Indication: DEPRESSION
     Route: 048
     Dates: start: 20100518, end: 20100519
  4. NEUPOGEN [Concomitant]
     Indication: NEUTROPENIA
     Route: 058
     Dates: start: 20100518
  5. VERGENTAN [Concomitant]
     Indication: NAUSEA
     Dosage: 50-150 MG
     Route: 048
     Dates: start: 20100510, end: 20100514

REACTIONS (2)
  - PSYCHOTIC DISORDER [None]
  - VOMITING [None]
